FAERS Safety Report 8319989-3 (Version None)
Quarter: 2012Q2

REPORT INFORMATION
  Report Type: 
  Country: None (occurrence: None)
  Receive Date: 20120427
  Receipt Date: 20120417
  Transmission Date: 20120825
  Serious: Yes (Hospitalization, Other)
  Sender: FDA-Public Use
  Company Number: ES-MEDIMMUNE-MEDI-0015504

PATIENT
  Age: 2 Month
  Sex: Female

DRUGS (1)
  1. SYNAGIS [Suspect]
     Route: 030
     Dates: start: 20120217, end: 20120217

REACTIONS (4)
  - THROMBOCYTOPENIA [None]
  - PYREXIA [None]
  - HYPERTRANSAMINASAEMIA [None]
  - ANAEMIA [None]
